FAERS Safety Report 12160233 (Version 1)
Quarter: 2016Q1

REPORT INFORMATION
  Report Type: Spontaneous
  Country: US (occurrence: US)
  Receive Date: 20160308
  Receipt Date: 20160308
  Transmission Date: 20160526
  Serious: No
  Sender: FDA-Public Use
  Company Number: US-SMITH AND NEPHEW, INC-2015SMT00036

PATIENT
  Age: 65 Year
  Sex: Female
  Weight: 102.4 kg

DRUGS (6)
  1. LATANOPROST. [Concomitant]
     Active Substance: LATANOPROST
  2. COLLAGENASE SANTYL [Suspect]
     Active Substance: COLLAGENASE CLOSTRIDIUM HISTOLYTICUM
     Dosage: 1 DOSAGE, 250 U/G, LESS APPLIED EACH APPLICATION
     Route: 061
     Dates: start: 201503, end: 20150312
  3. DORZOLAMIDE [Concomitant]
     Active Substance: DORZOLAMIDE
  4. COLLAGENASE SANTYL [Suspect]
     Active Substance: COLLAGENASE CLOSTRIDIUM HISTOLYTICUM
     Indication: LIMB INJURY
     Dosage: 1 DOSAGE UNITS, 250 U/G, THICKNESS OF A DIME
     Route: 061
     Dates: start: 20150302, end: 201503
  5. MULTIVITAMIN WITH ANTIOXIDANTS [Concomitant]
  6. ALPHAGAN P [Concomitant]
     Active Substance: BRIMONIDINE TARTRATE

REACTIONS (3)
  - Application site pain [Recovered/Resolved]
  - Wound complication [Recovering/Resolving]
  - Drug ineffective [Not Recovered/Not Resolved]

NARRATIVE: CASE EVENT DATE: 201503
